FAERS Safety Report 20203951 (Version 1)
Quarter: 2021Q4

REPORT INFORMATION
  Report Type: Spontaneous
  Country: US (occurrence: US)
  Receive Date: 20211219
  Receipt Date: 20211219
  Transmission Date: 20220304
  Serious: Yes (Other)
  Sender: FDA-Public Use
  Company Number: US-BEH-2021139275

PATIENT
  Sex: Female

DRUGS (4)
  1. HIZENTRA [Suspect]
     Active Substance: HUMAN IMMUNOGLOBULIN G
     Indication: Juvenile idiopathic arthritis
     Dosage: 14 GRAM, QW
     Route: 058
     Dates: start: 20210621
  2. HIZENTRA [Suspect]
     Active Substance: HUMAN IMMUNOGLOBULIN G
     Indication: Still^s disease
  3. HIZENTRA [Suspect]
     Active Substance: HUMAN IMMUNOGLOBULIN G
     Indication: Hypogammaglobulinaemia
  4. ORENCIA [Concomitant]
     Active Substance: ABATACEPT
     Route: 065

REACTIONS (4)
  - Juvenile idiopathic arthritis [Unknown]
  - Arthralgia [Unknown]
  - No adverse event [Unknown]
  - Off label use [Unknown]
